FAERS Safety Report 25041659 (Version 2)
Quarter: 2025Q1

REPORT INFORMATION
  Report Type: Spontaneous
  Country: DE (occurrence: DE)
  Receive Date: 20250305
  Receipt Date: 20250319
  Transmission Date: 20250409
  Serious: Yes (Hospitalization, Other)
  Sender: MERCK SHARP & DOHME LLC
  Company Number: DE-009507513-2258930

PATIENT
  Age: 69 Year
  Sex: Female

DRUGS (14)
  1. PEMBROLIZUMAB [Suspect]
     Active Substance: PEMBROLIZUMAB
     Indication: Breast cancer metastatic
     Dates: start: 20241112, end: 20250123
  2. PACLITAXEL [Suspect]
     Active Substance: PACLITAXEL
     Indication: Triple negative breast cancer
     Dates: start: 20241112, end: 20250123
  3. PACLITAXEL [Suspect]
     Active Substance: PACLITAXEL
     Indication: Triple negative breast cancer
     Dates: start: 20250206, end: 20250303
  4. CARBOPLATIN [Suspect]
     Active Substance: CARBOPLATIN
     Indication: Triple negative breast cancer
     Dates: start: 20241112, end: 20250123
  5. CARBOPLATIN [Suspect]
     Active Substance: CARBOPLATIN
     Indication: Triple negative breast cancer
     Dates: start: 20250206, end: 20250303
  6. GCSF: Fulphila [Concomitant]
     Indication: Febrile neutropenia
     Dates: start: 20241113, end: 20250306
  7. Akynzeo [Concomitant]
     Indication: Prophylaxis of nausea and vomiting
     Dates: start: 20241112, end: 20250306
  8. CLEMASTINE FUMARATE [Concomitant]
     Active Substance: CLEMASTINE FUMARATE
     Indication: Hypersensitivity
     Dates: start: 20241112, end: 20250306
  9. PANTOPRAZOLE SODIUM [Concomitant]
     Active Substance: PANTOPRAZOLE SODIUM
     Dates: start: 20241112, end: 20250306
  10. DEXAMETHASONE [Concomitant]
     Active Substance: DEXAMETHASONE
     Indication: Self-medication
     Dates: start: 20241112, end: 20250306
  11. BISOPROLOL [Concomitant]
     Active Substance: BISOPROLOL
  12. RAMIPRIL [Concomitant]
     Active Substance: RAMIPRIL
  13. ENOXAPARIN [Concomitant]
     Active Substance: ENOXAPARIN
  14. NALOXONE HYDROCHLORIDE\TILIDINE HYDROCHLORIDE [Concomitant]
     Active Substance: NALOXONE HYDROCHLORIDE\TILIDINE HYDROCHLORIDE

REACTIONS (2)
  - Delirium [Recovered/Resolved]
  - Aggression [Recovered/Resolved]

NARRATIVE: CASE EVENT DATE: 20250127
